FAERS Safety Report 5601402-8 (Version None)
Quarter: 2007Q4

REPORT INFORMATION
  Report Type: 
  Country: None (occurrence: None)
  Receive Date: 20071226
  Receipt Date: 20070725
  Transmission Date: 20080405
  Serious: Yes (Hospitalization)
  Sender: FDA-Public Use
  Company Number: 235114

PATIENT
  Age: 55 Year
  Sex: Female

DRUGS (5)
  1. RAPTIVA [Suspect]
     Indication: PSORIASIS
     Dosage: 1 MG/KG, 1/WEEK SUBCUTANEOUS
     Route: 058
     Dates: start: 20060807, end: 20061115
  2. ZOCOR [Concomitant]
  3. LEVOXYL [Concomitant]
  4. WELLBUTRIN [Concomitant]
  5. SINGULAIR [Concomitant]

REACTIONS (2)
  - HEADACHE [None]
  - PLATELET COUNT DECREASED [None]
